FAERS Safety Report 25202298 (Version 1)
Quarter: 2025Q2

REPORT INFORMATION
  Report Type: Spontaneous
  Country: FR (occurrence: FR)
  Receive Date: 20250416
  Receipt Date: 20250416
  Transmission Date: 20250717
  Serious: Yes (Other)
  Sender: Atnahs Healthcare
  Company Number: FR-ATNAHS-ATNAHS20250201841

PATIENT
  Age: 14 Year
  Sex: Female

DRUGS (17)
  1. CLOBAZAM [Suspect]
     Active Substance: CLOBAZAM
     Indication: Epilepsy
     Dates: start: 1992
  2. CLOBAZAM [Suspect]
     Active Substance: CLOBAZAM
  3. PHENOBARBITAL [Suspect]
     Active Substance: PHENOBARBITAL
     Indication: Epilepsy
     Dates: start: 1992
  4. PHENOBARBITAL [Suspect]
     Active Substance: PHENOBARBITAL
     Dosage: 75 MG IN THE EVENING
  5. VALIUM [Suspect]
     Active Substance: DIAZEPAM
     Indication: Seizure
  6. VALIUM [Suspect]
     Active Substance: DIAZEPAM
     Dosage: 1 TAB IN THE EVENING
  7. VALPROATE SODIUM [Suspect]
     Active Substance: VALPROATE SODIUM
     Indication: Epilepsy
     Dosage: 1500 MG, 1X/DAY
  8. VALPROATE SODIUM [Suspect]
     Active Substance: VALPROATE SODIUM
     Dosage: 3 DOSAGE FORM, 1X/DAY
  9. VALPROATE SODIUM [Suspect]
     Active Substance: VALPROATE SODIUM
     Dates: start: 199207
  10. VALPROATE SODIUM [Suspect]
     Active Substance: VALPROATE SODIUM
  11. PHENOBARBITAL [Suspect]
     Active Substance: PHENOBARBITAL
     Indication: Seizure
  12. PHENOBARBITAL [Suspect]
     Active Substance: PHENOBARBITAL
     Dosage: 2 TABLETS IN THE EVENING
  13. SABRIL [Suspect]
     Active Substance: VIGABATRIN
     Indication: Seizure
  14. TEGRETOL [Suspect]
     Active Substance: CARBAMAZEPINE
     Indication: Epilepsy
  15. TEGRETOL [Suspect]
     Active Substance: CARBAMAZEPINE
  16. TEGRETOL [Suspect]
     Active Substance: CARBAMAZEPINE
  17. LAMICTAL [Suspect]
     Active Substance: LAMOTRIGINE
     Indication: Seizure

REACTIONS (2)
  - Seizure [Unknown]
  - Drug ineffective [Unknown]

NARRATIVE: CASE EVENT DATE: 19921206
